FAERS Safety Report 6555035-X (Version None)
Quarter: 2010Q1

REPORT INFORMATION
  Report Type: 
  Country: None (occurrence: None)
  Receive Date: 20100128
  Receipt Date: 20100121
  Transmission Date: 20100710
  Serious: Yes (Other)
  Sender: FDA-Public Use
  Company Number: US-BIOGENIDEC-2010BI000442

PATIENT
  Age: 55 Year
  Sex: Male
  Weight: 97 kg

DRUGS (6)
  1. TYSABRI [Suspect]
     Indication: MULTIPLE SCLEROSIS
     Route: 042
     Dates: start: 20081020, end: 20091104
  2. LORCET-HD [Concomitant]
  3. PAMELOR [Concomitant]
  4. OXYCODONE [Concomitant]
  5. CELEXA [Concomitant]
  6. VALIUM [Concomitant]

REACTIONS (3)
  - DEEP VEIN THROMBOSIS [None]
  - MULTIPLE SCLEROSIS [None]
  - POOR VENOUS ACCESS [None]
